FAERS Safety Report 7451505-0 (Version None)
Quarter: 2011Q2

REPORT INFORMATION
  Report Type: 
  Country: None (occurrence: None)
  Receive Date: 20110502
  Receipt Date: 20110418
  Transmission Date: 20111010
  Serious: Yes (Other)
  Sender: FDA-Public Use
  Company Number: AT-JNJFOC-20110408398

PATIENT
  Age: 23 Year
  Sex: Female

DRUGS (4)
  1. ACEMETACIN [Concomitant]
     Route: 065
  2. REMICADE [Suspect]
     Route: 042
  3. REMICADE [Suspect]
     Indication: ANKYLOSING SPONDYLITIS
     Route: 042
  4. CALCIUM [Concomitant]
     Route: 065

REACTIONS (6)
  - FLUSHING [None]
  - DYSPNOEA [None]
  - HYPOTONIA [None]
  - INFUSION RELATED REACTION [None]
  - HYPERSENSITIVITY [None]
  - ANGINA PECTORIS [None]
